FAERS Safety Report 11911333 (Version 2)
Quarter: 2016Q1

REPORT INFORMATION
  Report Type: Spontaneous
  Country: US (occurrence: US)
  Receive Date: 20160112
  Receipt Date: 20160120
  Transmission Date: 20160526
  Serious: No
  Sender: FDA-Public Use
  Company Number: US-TEVA-624055USA

PATIENT
  Age: 62 Year
  Sex: Male
  Weight: 77.18 kg

DRUGS (18)
  1. METHYLPHENIDATE. [Suspect]
     Active Substance: METHYLPHENIDATE
     Indication: MULTIPLE SCLEROSIS
     Route: 065
  2. TYSABRI [Concomitant]
     Active Substance: NATALIZUMAB
     Indication: MULTIPLE SCLEROSIS
  3. TAMSULOSIN [Concomitant]
     Active Substance: TAMSULOSIN
     Indication: BLADDER DISORDER
  4. MODAFINIL. [Suspect]
     Active Substance: MODAFINIL
     Indication: MULTIPLE SCLEROSIS
  5. METHYLPHENIDATE. [Suspect]
     Active Substance: METHYLPHENIDATE
     Indication: ASTHENIA
  6. NUVIGIL [Suspect]
     Active Substance: ARMODAFINIL
     Indication: FATIGUE
     Route: 065
     Dates: start: 20151215, end: 20151230
  7. MODAFINIL. [Suspect]
     Active Substance: MODAFINIL
     Indication: FATIGUE
     Route: 065
     Dates: start: 201505
  8. MODAFINIL. [Suspect]
     Active Substance: MODAFINIL
     Indication: PROGRESSIVE RELAPSING MULTIPLE SCLEROSIS
  9. BACLOFEN. [Concomitant]
     Active Substance: BACLOFEN
     Indication: SLEEP DISORDER
  10. AZELASTINE HYDROCHLORIDE. [Concomitant]
     Active Substance: AZELASTINE HYDROCHLORIDE
     Indication: ASTHENIA
  11. TRAZODONE [Concomitant]
     Active Substance: TRAZODONE HYDROCHLORIDE
     Indication: DEPRESSION
  12. TRAZODONE [Concomitant]
     Active Substance: TRAZODONE HYDROCHLORIDE
     Indication: SLEEP DISORDER
  13. AMPYRA [Concomitant]
     Active Substance: DALFAMPRIDINE
     Indication: GAIT DISTURBANCE
  14. CLONAZEPAM. [Concomitant]
     Active Substance: CLONAZEPAM
     Indication: SLEEP DISORDER
  15. BAYASPIRIN [Concomitant]
     Active Substance: ASPIRIN
  16. MODAFINIL. [Suspect]
     Active Substance: MODAFINIL
     Indication: MUSCULAR WEAKNESS
     Route: 065
     Dates: start: 201508
  17. NUVIGIL [Suspect]
     Active Substance: ARMODAFINIL
     Indication: ASTHENIA
  18. ATORVASTATIN [Concomitant]
     Active Substance: ATORVASTATIN
     Indication: BLOOD CHOLESTEROL INCREASED

REACTIONS (6)
  - Fatigue [Unknown]
  - Product use issue [Unknown]
  - Off label use [Recovered/Resolved]
  - Drug ineffective for unapproved indication [Unknown]
  - Product substitution issue [Recovered/Resolved]
  - Drug effect decreased [Recovered/Resolved]

NARRATIVE: CASE EVENT DATE: 20151215
